FAERS Safety Report 6988513-X (Version None)
Quarter: 2010Q3

REPORT INFORMATION
  Report Type: 
  Country: None (occurrence: None)
  Receive Date: 20100916
  Receipt Date: 20100907
  Transmission Date: 20110219
  Serious: Yes (Hospitalization)
  Sender: FDA-Public Use
  Company Number: CH-PFIZER INC-2010112538

PATIENT
  Age: 83 Year
  Sex: Male

DRUGS (2)
  1. DALACIN [Suspect]
     Indication: STAPHYLOCOCCAL INFECTION
     Dosage: 300 MG, 4X/DAY
     Route: 048
     Dates: start: 20100711, end: 20100722
  2. CIPROXIN [Suspect]
     Indication: STAPHYLOCOCCAL INFECTION
     Dosage: 500 MG, 2X/DAY
     Route: 048
     Dates: start: 20100711, end: 20100722

REACTIONS (5)
  - DRUG RASH WITH EOSINOPHILIA AND SYSTEMIC SYMPTOMS [None]
  - EOSINOPHILIA [None]
  - PYREXIA [None]
  - RASH PRURITIC [None]
  - RENAL FAILURE CHRONIC [None]
